FAERS Safety Report 11733286 (Version 1)
Quarter: 2015Q4

REPORT INFORMATION
  Report Type: Spontaneous
  Country: US (occurrence: US)
  Receive Date: 20151110
  Receipt Date: 20151110
  Transmission Date: 20160304
  Serious: No
  Sender: FDA-Public Use
  Company Number: US-ELI_LILLY_AND_COMPANY-US201205004635

PATIENT
  Age: 56 Year
  Sex: Female

DRUGS (2)
  1. CORTICOSTEROIDS [Concomitant]
     Active Substance: CORTICOSTEROID NOS
     Indication: PERIPHERAL SWELLING
  2. FORTEO [Suspect]
     Active Substance: TERIPARATIDE
     Indication: OSTEOPOROSIS
     Dosage: 20 UG, QOD
     Route: 065
     Dates: start: 201111, end: 201202

REACTIONS (4)
  - Drug prescribing error [Recovered/Resolved]
  - Joint arthroplasty [Unknown]
  - Arthritis [Unknown]
  - Bone operation [Unknown]

NARRATIVE: CASE EVENT DATE: 201111
